FAERS Safety Report 16975340 (Version 5)
Quarter: 2019Q4

REPORT INFORMATION
  Report Type: Report from Study
  Country: CO (occurrence: CO)
  Receive Date: 20191030
  Receipt Date: 20191224
  Transmission Date: 20200122
  Serious: Yes (Hospitalization, Other)
  Sender: FDA-Public Use
  Company Number: CO-ACTELION-A-CH2019-197549

PATIENT
  Age: 67 Year
  Sex: Female
  Weight: 52 kg

DRUGS (5)
  1. MACITENTAN [Suspect]
     Active Substance: MACITENTAN
     Dosage: 10 MG, QD
     Route: 048
     Dates: start: 20190429, end: 20190529
  2. SILDENAFIL. [Suspect]
     Active Substance: SILDENAFIL
     Indication: PRODUCT USED FOR UNKNOWN INDICATION
     Dosage: UNK, TID
     Route: 065
  3. RIOCIGUAT. [Concomitant]
     Active Substance: RIOCIGUAT
     Dosage: 1 MG, TID
     Route: 048
     Dates: start: 201811, end: 2019
  4. MACITENTAN [Suspect]
     Active Substance: MACITENTAN
     Indication: PULMONARY ARTERIAL HYPERTENSION
     Dosage: 10 MG, QD
     Route: 048
     Dates: start: 20190828, end: 201909
  5. SILDENAFIL. [Suspect]
     Active Substance: SILDENAFIL
     Dosage: UNK, BID
     Route: 065

REACTIONS (4)
  - Dizziness [Not Recovered/Not Resolved]
  - Arteriovenous fistula [Not Recovered/Not Resolved]
  - Cardiac disorder [Not Recovered/Not Resolved]
  - Arterial disorder [Not Recovered/Not Resolved]

NARRATIVE: CASE EVENT DATE: 201910
